FAERS Safety Report 14563485 (Version 1)
Quarter: 2018Q1

REPORT INFORMATION
  Report Type: Report from Study
  Country: US (occurrence: US)
  Receive Date: 20180222
  Receipt Date: 20180222
  Transmission Date: 20180509
  Serious: Yes (Hospitalization)
  Sender: FDA-Public Use
  Company Number: US-ELI_LILLY_AND_COMPANY-US201802009071

PATIENT
  Sex: Male

DRUGS (2)
  1. RAMUCIRUMAB [Suspect]
     Active Substance: RAMUCIRUMAB
     Indication: LUNG NEOPLASM
     Dosage: UNK, EVERY THREE WEEKS
     Route: 042
     Dates: start: 20170927
  2. RAMUCIRUMAB [Suspect]
     Active Substance: RAMUCIRUMAB
     Indication: BRONCHIAL NEOPLASM
     Dosage: UNK, EVERY THREE WEEKS
     Route: 042
     Dates: start: 20170927

REACTIONS (1)
  - Abdominal pain [Unknown]
